FAERS Safety Report 8243692-1 (Version None)
Quarter: 2012Q1

REPORT INFORMATION
  Report Type: 
  Country: None (occurrence: None)
  Receive Date: 20120329
  Receipt Date: 20120319
  Transmission Date: 20120608
  Serious: Yes (Hospitalization)
  Sender: FDA-Public Use
  Company Number: NL-MEDIMMUNE-MEDI-0015310

PATIENT
  Sex: Female
  Weight: 6.11 kg

DRUGS (2)
  1. SYNAGIS [Suspect]
     Route: 030
     Dates: start: 20120220, end: 20120319
  2. SYNAGIS [Suspect]
     Indication: PREMATURE BABY
     Route: 030
     Dates: start: 20110908, end: 20110908

REACTIONS (4)
  - DYSPNOEA [None]
  - VIRAL INFECTION [None]
  - RHINORRHOEA [None]
  - COUGH [None]
